FAERS Safety Report 4413537-6 (Version None)
Quarter: 2004Q3

REPORT INFORMATION
  Report Type: 
  Country: None (occurrence: None)
  Receive Date: 20040728
  Receipt Date: 20040713
  Transmission Date: 20050211
  Serious: Yes (Other)
  Sender: FDA-Public Use
  Company Number: USA040670074

PATIENT
  Age: 21 Year
  Sex: Male
  Weight: 80 kg

DRUGS (4)
  1. STRATTERA [Suspect]
     Indication: ATTENTION DEFICIT/HYPERACTIVITY DISORDER
     Dosage: 80 MG DAY
     Dates: start: 20040531
  2. RISPERDAL [Concomitant]
  3. WELLBUTRIN SR [Concomitant]
  4. TRAZADONE (TRAZODONE) [Concomitant]

REACTIONS (3)
  - CONVULSION [None]
  - RESPIRATORY ARREST [None]
  - SYNCOPE VASOVAGAL [None]
